FAERS Safety Report 6953656-3 (Version None)
Quarter: 2010Q3

REPORT INFORMATION
  Report Type: 
  Country: None (occurrence: None)
  Receive Date: 20100829
  Receipt Date: 20100616
  Transmission Date: 20110219
  Serious: No
  Sender: FDA-Public Use
  Company Number: US-ABBOTT-10P-163-0652793-00

PATIENT
  Sex: Female
  Weight: 70.37 kg

DRUGS (9)
  1. NIASPAN [Suspect]
     Indication: BLOOD CHOLESTEROL
     Dates: start: 20100301, end: 20100501
  2. METFORMIN [Concomitant]
     Indication: DIABETES MELLITUS
  3. LEVAMIR [Concomitant]
     Indication: DIABETES MELLITUS
  4. SPIRONOLACTONE [Concomitant]
     Indication: BLOOD PRESSURE
  5. SYNTHROID [Concomitant]
     Indication: PRODUCT USED FOR UNKNOWN INDICATION
  6. DIAZEPAM [Concomitant]
     Indication: PRODUCT USED FOR UNKNOWN INDICATION
  7. TRAZODONE HCL [Concomitant]
     Indication: PRODUCT USED FOR UNKNOWN INDICATION
  8. TYLENOL WITH COD #3 [Concomitant]
     Indication: PRODUCT USED FOR UNKNOWN INDICATION
  9. AMLODIPINE [Concomitant]
     Indication: BLOOD PRESSURE

REACTIONS (2)
  - FLUSHING [None]
  - PRURITUS [None]
